FAERS Safety Report 11258064 (Version 2)
Quarter: 2015Q3

REPORT INFORMATION
  Report Type: Spontaneous
  Country: US (occurrence: US)
  Receive Date: 20150710
  Receipt Date: 20150710
  Transmission Date: 20151125
  Serious: Yes (Other)
  Sender: FDA-Public Use
  Company Number: PHEH2015US012446

PATIENT
  Age: 78 Year
  Sex: Male

DRUGS (4)
  1. STALEVO [Suspect]
     Active Substance: CARBIDOPA\ENTACAPONE\LEVODOPA
     Indication: PARKINSONISM
     Dosage: 150 MG, TID
     Route: 065
  2. ASPIRIN. [Concomitant]
     Active Substance: ASPIRIN
     Indication: PRODUCT USED FOR UNKNOWN INDICATION
     Route: 065
  3. ATENOLOL. [Concomitant]
     Active Substance: ATENOLOL
     Indication: PRODUCT USED FOR UNKNOWN INDICATION
     Route: 065
  4. ROPINIROLE. [Suspect]
     Active Substance: ROPINIROLE
     Indication: PARKINSONISM
     Dosage: 10 MG, QD
     Route: 065

REACTIONS (7)
  - Muscle rigidity [Unknown]
  - Facial paresis [Unknown]
  - Dyskinesia [Unknown]
  - Dysphonia [Unknown]
  - Blood pressure decreased [Unknown]
  - Constipation [Unknown]
  - Immobile [Unknown]

NARRATIVE: CASE EVENT DATE: 20150219
